FAERS Safety Report 11629374 (Version 1)
Quarter: 2015Q4

REPORT INFORMATION
  Report Type: Spontaneous
  Country: US (occurrence: None)
  Receive Date: 20151013
  Receipt Date: 20151013
  Transmission Date: 20160304
  Serious: Yes (Other)
  Sender: FDA-Public Use
  Company Number: None

PATIENT
  Age: 72 Year
  Sex: Female
  Weight: 67.13 kg

DRUGS (1)
  1. EXPAREL [Suspect]
     Active Substance: BUPIVACAINE
     Indication: HERNIA REPAIR
     Dosage: 20 ML, INFILTRATION
     Dates: start: 20150922

REACTIONS (2)
  - Hypoaesthesia [None]
  - Fall [None]

NARRATIVE: CASE EVENT DATE: 20150922
